FAERS Safety Report 25259380 (Version 1)
Quarter: 2025Q2

REPORT INFORMATION
  Report Type: Spontaneous
  Country: US (occurrence: None)
  Receive Date: 20250430
  Receipt Date: 20250430
  Transmission Date: 20250716
  Serious: Yes (Disabling)
  Sender: FDA-CTU
  Company Number: None

PATIENT
  Age: 46 Year
  Sex: Male
  Weight: 132.75 kg

DRUGS (5)
  1. CABOTEGRAVIR [Suspect]
     Active Substance: CABOTEGRAVIR
     Indication: HIV infection
     Dates: start: 20241001
  2. DEVICE [Concomitant]
     Active Substance: DEVICE
  3. TYLENOL [Concomitant]
     Active Substance: ACETAMINOPHEN
  4. VITAMINS [Concomitant]
     Active Substance: VITAMINS
  5. MAGNESIUM [Concomitant]
     Active Substance: MAGNESIUM

REACTIONS (12)
  - Illness [None]
  - Malaise [None]
  - Bacteraemia [None]
  - Epstein-Barr virus test positive [None]
  - Brain fog [None]
  - Depression [None]
  - Condition aggravated [None]
  - Self esteem decreased [None]
  - Muscle spasms [None]
  - Muscle disorder [None]
  - Myalgia [None]
  - Suicidal ideation [None]

NARRATIVE: CASE EVENT DATE: 20250115
